FAERS Safety Report 9350974 (Version 1)
Quarter: 2013Q2

REPORT INFORMATION
  Report Type: Spontaneous
  Country: US (occurrence: US)
  Receive Date: 20130617
  Receipt Date: 20130620
  Transmission Date: 20140414
  Serious: Yes (Disabling, Other)
  Sender: FDA-Public Use
  Company Number: US-PERRIGO-13US006139

PATIENT
  Age: 51 Year
  Sex: Female
  Weight: 81.63 kg

DRUGS (5)
  1. DIPHENHYDRAMINE HYDROCHLORIDE 25 MG 462 [Suspect]
     Indication: SEASONAL ALLERGY
     Dosage: 1 CAPSULE, TWICE
     Route: 048
     Dates: start: 20130530, end: 20130530
  2. DIPHENHYDRAMINE HYDROCHLORIDE 25 MG 462 [Suspect]
     Dosage: UNK
     Route: 048
     Dates: start: 2008, end: 2008
  3. KEPPRA [Suspect]
     Indication: CONVULSION
     Dosage: 750 MG, QD
     Route: 048
     Dates: start: 20130530
  4. KEPPRA [Suspect]
     Dosage: 500 MG, QD
     Route: 048
     Dates: start: 2008, end: 20130529
  5. TEGRETAL [Concomitant]
     Indication: CONVULSION
     Dosage: UNK
     Route: 065

REACTIONS (4)
  - Convulsion [Recovered/Resolved]
  - Fall [Unknown]
  - Drug interaction [Recovered/Resolved]
  - Contusion [Unknown]
